FAERS Safety Report 12355660 (Version 1)
Quarter: 2016Q2

REPORT INFORMATION
  Report Type: Spontaneous
  Country: US (occurrence: None)
  Receive Date: 20160510
  Receipt Date: 20160510
  Transmission Date: 20160815
  Serious: Yes (Disabling)
  Sender: FDA-Public Use
  Company Number: None

PATIENT
  Age: 36 Year
  Sex: Male
  Weight: 103.42 kg

DRUGS (1)
  1. VISINE [Suspect]
     Active Substance: TETRAHYDROZOLINE HYDROCHLORIDE
     Indication: MULTIPLE ALLERGIES
     Route: 047

REACTIONS (1)
  - Atrial fibrillation [None]

NARRATIVE: CASE EVENT DATE: 20160509
